FAERS Safety Report 14700890 (Version 1)
Quarter: 2018Q1

REPORT INFORMATION
  Report Type: Spontaneous
  Country: US (occurrence: US)
  Receive Date: 20180328
  Receipt Date: 20180328
  Transmission Date: 20180509
  Serious: Yes (Hospitalization)
  Sender: FDA-Public Use
  Company Number: None

PATIENT
  Age: 91 Year
  Sex: Male

DRUGS (1)
  1. ATENOLOL. [Suspect]
     Active Substance: ATENOLOL
     Indication: HYPERTENSION
     Route: 048
     Dates: start: 20150519, end: 20180307

REACTIONS (4)
  - Fall [None]
  - Bradycardia [None]
  - Syncope [None]
  - Atrioventricular block second degree [None]

NARRATIVE: CASE EVENT DATE: 20180307
